FAERS Safety Report 9888549 (Version 2)
Quarter: 2014Q1

REPORT INFORMATION
  Report Type: Spontaneous
  Country: US (occurrence: US)
  Receive Date: 20140211
  Receipt Date: 20140227
  Transmission Date: 20141002
  Serious: No
  Sender: FDA-Public Use
  Company Number: US-BAYER-2014-021083

PATIENT
  Sex: Female

DRUGS (2)
  1. MIRENA [Suspect]
     Indication: CONTRACEPTION
     Dosage: 20 MCG/24HR, CONT
     Route: 015
     Dates: start: 20131209, end: 20131209
  2. SKYLA [Suspect]
     Dosage: 12 MCG/24HR, CONT
     Route: 015
     Dates: start: 20131209, end: 20131209

REACTIONS (3)
  - Device expulsion [Recovered/Resolved]
  - Device deployment issue [None]
  - Contraindication to medical treatment [None]
